FAERS Safety Report 11785937 (Version 4)
Quarter: 2015Q4

REPORT INFORMATION
  Report Type: Spontaneous
  Country: IN (occurrence: IN)
  Receive Date: 20151130
  Receipt Date: 20151210
  Transmission Date: 20160305
  Serious: Yes (Death, Life-Threatening, Other)
  Sender: FDA-Public Use
  Company Number: PHHY2015IN152970

PATIENT
  Age: 45 Year
  Sex: Male

DRUGS (6)
  1. IMMUNOGLOBULIN I.V [Concomitant]
     Active Substance: HUMAN IMMUNOGLOBULIN G
     Indication: SURGICAL PRECONDITIONING
     Dosage: 10 G, UNK
     Route: 042
  2. BASILIXIMAB [Suspect]
     Active Substance: BASILIXIMAB
     Indication: RENAL TRANSPLANT
     Route: 065
  3. CICLOSPORIN [Suspect]
     Active Substance: CYCLOSPORINE
     Indication: RENAL TRANSPLANT
     Route: 065
  4. TACROLIMUS. [Suspect]
     Active Substance: TACROLIMUS
     Indication: RENAL TRANSPLANT
     Dosage: 0.05 MG/KG, QD
     Route: 065
  5. MYCOPHENOLIC ACID. [Suspect]
     Active Substance: MYCOPHENOLIC ACID
     Indication: RENAL TRANSPLANT
     Dosage: 1000 MG, QD
     Route: 065
  6. RITUXIMAB [Concomitant]
     Active Substance: RITUXIMAB
     Indication: SURGICAL PRECONDITIONING
     Dosage: 200 MG, UNK
     Route: 065

REACTIONS (8)
  - Vomiting [Fatal]
  - Septic shock [Fatal]
  - Abdominal pain upper [Fatal]
  - Sepsis [Fatal]
  - Mucormycosis [Fatal]
  - Cytomegalovirus gastritis [Fatal]
  - Thrombotic microangiopathy [Unknown]
  - Abdominal tenderness [Fatal]
